FAERS Safety Report 16123087 (Version 1)
Quarter: 2019Q1

REPORT INFORMATION
  Report Type: Spontaneous
  Country: US (occurrence: US)
  Receive Date: 20190222
  Receipt Date: 20190222
  Transmission Date: 20190418
  Serious: No
  Sender: FDA-Public Use
  Company Number: None

PATIENT
  Age: 45 Year
  Sex: Female

DRUGS (1)
  1. BARACLUDE [Suspect]
     Active Substance: ENTECAVIR
     Route: 048
     Dates: start: 201809

REACTIONS (2)
  - Pathogen resistance [None]
  - Product use issue [None]

NARRATIVE: CASE EVENT DATE: 20190222
